FAERS Safety Report 4423001-6 (Version None)
Quarter: 2004Q3

REPORT INFORMATION
  Report Type: 
  Country: None (occurrence: None)
  Receive Date: 20040811
  Receipt Date: 20040802
  Transmission Date: 20050211
  Serious: Yes (Hospitalization)
  Sender: FDA-Public Use
  Company Number: FR-JNJFOC-20040800659

PATIENT
  Sex: Female
  Weight: 43 kg

DRUGS (10)
  1. HALDOL [Suspect]
     Indication: DRUG USE FOR UNKNOWN INDICATION
     Route: 049
  2. OMEPRAZOLE [Suspect]
     Indication: DRUG USE FOR UNKNOWN INDICATION
     Route: 049
  3. SECTRAL [Concomitant]
  4. VASTAREL [Concomitant]
  5. LEXOMIL [Concomitant]
  6. STILNOX [Concomitant]
  7. DUPHALAC [Concomitant]
  8. ASPEGIC 325 [Concomitant]
  9. CLARITIN [Concomitant]
  10. NITROGLYCERIN [Concomitant]

REACTIONS (1)
  - PEMPHIGOID [None]
